FAERS Safety Report 19583172 (Version 4)
Quarter: 2021Q4

REPORT INFORMATION
  Report Type: Report from Study
  Country: AT (occurrence: AT)
  Receive Date: 20210719
  Receipt Date: 20211227
  Transmission Date: 20220303
  Serious: Yes (Hospitalization, Other)
  Sender: FDA-Public Use
  Company Number: AT-CELLTRION INC.-2021AT009531

PATIENT

DRUGS (29)
  1. TRASTUZUMAB [Suspect]
     Active Substance: TRASTUZUMAB
     Indication: Breast cancer metastatic
     Dosage: 354 MG, EVERY 3 WEEKS
     Route: 041
     Dates: start: 20160629, end: 20180621
  2. TRASTUZUMAB [Suspect]
     Active Substance: TRASTUZUMAB
     Indication: Breast cancer
     Dosage: 372 MG, EVERY 4 WEEKS
     Route: 041
     Dates: start: 20180719, end: 20200227
  3. TRASTUZUMAB [Suspect]
     Active Substance: TRASTUZUMAB
     Indication: HER2 positive breast cancer
     Dosage: 372 MG, EVERY 3 WEEKS
     Route: 041
     Dates: start: 20200227, end: 20200320
  4. PERTUZUMAB [Suspect]
     Active Substance: PERTUZUMAB
     Indication: Breast cancer metastatic
     Dosage: 420 MG, EVERY 3 WEEKS
     Route: 042
     Dates: start: 20160629, end: 20180621
  5. PERTUZUMAB [Suspect]
     Active Substance: PERTUZUMAB
     Indication: Breast cancer
     Dosage: 420 MG, EVERY 4 WEEKS
     Route: 042
     Dates: start: 20180719, end: 20200227
  6. PERTUZUMAB [Suspect]
     Active Substance: PERTUZUMAB
     Indication: HER2 positive breast cancer
     Dosage: 420 MG, EVERY 3 WEEKS
     Route: 042
     Dates: start: 20200227, end: 20200320
  7. FULVESTRANT [Suspect]
     Active Substance: FULVESTRANT
     Indication: HER2 positive breast cancer
     Dosage: 500 MG, EVERY 4 WEEKS
     Route: 058
     Dates: start: 20200716
  8. FULVESTRANT [Suspect]
     Active Substance: FULVESTRANT
     Dosage: 500 MG, EVERY 4 WEEKS
     Route: 058
     Dates: start: 20200716
  9. DOCETAXEL [Suspect]
     Active Substance: DOCETAXEL
     Indication: HER2 positive breast cancer
     Dosage: 75 MG, EVERY 3 WEEKS (RECENT DOSE ON 13/OCT/2016)
     Route: 042
     Dates: start: 20160629, end: 20161013
  10. LETROZOLE [Suspect]
     Active Substance: LETROZOLE
     Indication: HER2 positive breast cancer
     Dosage: 2.5 MG, DAILY
     Route: 048
     Dates: start: 20161021, end: 20200629
  11. DENOSUMAB [Suspect]
     Active Substance: DENOSUMAB
     Indication: HER2 positive breast cancer
     Dosage: 120 MG, EVERY 4 WEEKS
     Route: 058
     Dates: start: 20161121, end: 20210126
  12. RIBOCICLIB [Suspect]
     Active Substance: RIBOCICLIB
     Indication: HER2 positive breast cancer
     Dosage: 600 MG
     Route: 048
     Dates: start: 20200716, end: 20200814
  13. RIBOCICLIB [Suspect]
     Active Substance: RIBOCICLIB
     Dosage: 400 MG
     Route: 048
     Dates: start: 20201024
  14. BETAISODONA [Concomitant]
     Active Substance: POVIDONE-IODINE
     Indication: Paronychia
     Dosage: UNK
     Route: 061
     Dates: start: 20201111
  15. BETAISODONA [Concomitant]
     Active Substance: POVIDONE-IODINE
     Dosage: ONGOING = CHECKED
     Dates: start: 20201111
  16. BETAMETHASONE DIPROPIONATE [Concomitant]
     Active Substance: BETAMETHASONE DIPROPIONATE
     Indication: Rash
     Dosage: UNK, EVERY 0.5 DAY
     Route: 061
     Dates: start: 20180121
  17. BETAMETHASONE DIPROPIONATE [Concomitant]
     Active Substance: BETAMETHASONE DIPROPIONATE
     Dosage: ONGOING = CHECKED
     Dates: start: 20180621
  18. LISINOPRIL [Concomitant]
     Active Substance: LISINOPRIL
     Dosage: UNK
     Route: 048
     Dates: start: 20170115
  19. LISINOPRIL [Concomitant]
     Active Substance: LISINOPRIL
     Dosage: ONGOING = CHECKED
     Dates: start: 20170115
  20. EUTHYROX [Concomitant]
     Active Substance: LEVOTHYROXINE SODIUM
     Dosage: 75 MG, DAILY
     Route: 048
     Dates: start: 20210223
  21. EUTHYROX [Concomitant]
     Active Substance: LEVOTHYROXINE SODIUM
     Dosage: 100 UG
     Route: 048
     Dates: end: 20210222
  22. ATORVASTATIN [Concomitant]
     Active Substance: ATORVASTATIN
     Indication: Hypercholesterolaemia
     Dosage: 20 MG
     Route: 048
     Dates: start: 201701, end: 201701
  23. METHYLPREDNISOLONE ACEPONATE [Concomitant]
     Active Substance: METHYLPREDNISOLONE ACEPONATE
     Indication: Palmar-plantar erythrodysaesthesia syndrome
     Dosage: UNK
     Route: 061
     Dates: start: 20201111
  24. METHYLPREDNISOLONE ACEPONATE [Concomitant]
     Active Substance: METHYLPREDNISOLONE ACEPONATE
     Dosage: ONGOING = CHECKED
     Dates: start: 20201111
  25. NEBIVOLOL HYDROCHLORIDE [Concomitant]
     Active Substance: NEBIVOLOL HYDROCHLORIDE
     Dosage: UNK
     Route: 048
     Dates: start: 201701
  26. NEBIVOLOL HYDROCHLORIDE [Concomitant]
     Active Substance: NEBIVOLOL HYDROCHLORIDE
     Dosage: ONGOING = CHECKED
     Dates: start: 20170115
  27. NEBIVOLOL HYDROCHLORIDE [Concomitant]
     Active Substance: NEBIVOLOL HYDROCHLORIDE
     Dosage: UNK
     Route: 048
     Dates: start: 20170115
  28. ASPIRIN [Concomitant]
     Active Substance: ASPIRIN
     Dosage: ONGOING = CHECKED
     Dates: start: 20170115
  29. ASPIRIN [Concomitant]
     Active Substance: ASPIRIN
     Dosage: UNK
     Dates: start: 20170115

REACTIONS (2)
  - Osteonecrosis of jaw [Recovering/Resolving]
  - Off label use [Unknown]

NARRATIVE: CASE EVENT DATE: 20201215
